FAERS Safety Report 17878450 (Version 4)
Quarter: 2020Q3

REPORT INFORMATION
  Report Type: Spontaneous
  Country: US (occurrence: US)
  Receive Date: 20200610
  Receipt Date: 20200729
  Transmission Date: 20201103
  Serious: Yes (Hospitalization, Other)
  Sender: FDA-Public Use
  Company Number: US-ROCHE-2615255

PATIENT
  Age: 78 Year
  Sex: Female

DRUGS (2)
  1. ACTEMRA [Suspect]
     Active Substance: TOCILIZUMAB
     Indication: GIANT CELL ARTERITIS
     Dosage: 162 MG/09 ML
     Route: 058
     Dates: start: 20200122
  2. ACTEMRA [Suspect]
     Active Substance: TOCILIZUMAB
     Dosage: 162 MG/09ML PEN
     Route: 058
     Dates: start: 20191231

REACTIONS (5)
  - Hepatic enzyme increased [Unknown]
  - Road traffic accident [Unknown]
  - Liver function test abnormal [Unknown]
  - Rib fracture [Unknown]
  - Pneumothorax [Unknown]

NARRATIVE: CASE EVENT DATE: 20200530
